FAERS Safety Report 16162037 (Version 1)
Quarter: 2019Q2

REPORT INFORMATION
  Report Type: Spontaneous
  Country: ES (occurrence: ES)
  Receive Date: 20190405
  Receipt Date: 20190405
  Transmission Date: 20190711
  Serious: Yes (Hospitalization, Other)
  Sender: FDA-Public Use
  Company Number: ES-AUROBINDO-AUR-APL-2019-017783

PATIENT

DRUGS (21)
  1. AMOXICILLIN+CLAVULANIC ACID [Suspect]
     Active Substance: AMOXICILLIN\CLAVULANIC ACID
     Indication: PYREXIA
     Dosage: 875 MG, TID
     Route: 048
     Dates: start: 20160717, end: 20160726
  2. RUXOLITINIB [Suspect]
     Active Substance: RUXOLITINIB
     Indication: PRIMARY MYELOFIBROSIS
     Dosage: 150 MILLIGRAM, ONCE A DAY, 150 MG, QD
     Route: 048
     Dates: start: 20160304
  3. RUXOLITINIB [Suspect]
     Active Substance: RUXOLITINIB
     Dosage: 10 MILLIGRAM, ONCE A DAY
     Route: 048
     Dates: start: 20160412
  4. TIOTROPIUM [Concomitant]
     Active Substance: TIOTROPIUM
     Indication: PRODUCT USED FOR UNKNOWN INDICATION
     Dosage: UNK
     Route: 065
  5. TAMSULOSINE [Concomitant]
     Active Substance: TAMSULOSIN HYDROCHLORIDE
     Indication: PRODUCT USED FOR UNKNOWN INDICATION
     Dosage: UNK
     Route: 065
  6. AMOXICILLIN+CLAVULANIC ACID [Suspect]
     Active Substance: AMOXICILLIN\CLAVULANIC ACID
     Indication: RESPIRATORY TRACT INFECTION
  7. DACORTIN [Suspect]
     Active Substance: PREDNISONE
     Indication: RESPIRATORY TRACT INFECTION
     Dosage: 30 MILLIGRAM, ONCE A DAY, 30 MG, QD
     Route: 065
     Dates: start: 20160717, end: 20160726
  8. FUROSEMIDE. [Concomitant]
     Active Substance: FUROSEMIDE
     Indication: PRODUCT USED FOR UNKNOWN INDICATION
     Dosage: UNK
     Route: 065
  9. OMEPRAZOL [Concomitant]
     Active Substance: OMEPRAZOLE
     Indication: PRODUCT USED FOR UNKNOWN INDICATION
     Dosage: UNK
     Route: 065
  10. MOMELOTINIB [Suspect]
     Active Substance: MOMELOTINIB
     Dosage: 100 MILLIGRAM, ONCE A DAY, 100 MG, QD
     Route: 065
     Dates: start: 20160607, end: 20160621
  11. MOMELOTINIB [Suspect]
     Active Substance: MOMELOTINIB
     Dosage: 200 MILLIGRAM, ONCE A DAY, 200 MG, QD
     Route: 065
     Dates: start: 20160901, end: 20170713
  12. RUXOLITINIB [Suspect]
     Active Substance: RUXOLITINIB
     Dosage: 40 MILLIGRAM, ONCE A DAY
     Route: 048
     Dates: start: 20160304
  13. MOMELOTINIB [Suspect]
     Active Substance: MOMELOTINIB
     Indication: MYELOFIBROSIS
     Dosage: 200 MILLIGRAM, ONCE A DAY, 200 MG, QD
     Route: 065
     Dates: start: 20160304, end: 20160606
  14. RUXOLITINIB [Suspect]
     Active Substance: RUXOLITINIB
     Dosage: 20 MILLIGRAM, ONCE A DAY, 10 MG, BID
     Route: 048
     Dates: start: 20160510
  15. RUXOLITINIB [Suspect]
     Active Substance: RUXOLITINIB
     Dosage: 30 MILLIGRAM, ONCE A DAY, 15 MG, BID
     Route: 048
     Dates: start: 20160524
  16. MOMELOTINIB [Suspect]
     Active Substance: MOMELOTINIB
     Dosage: 200 MILLIGRAM, ONCE A DAY, 200 MG, QD
     Route: 065
     Dates: start: 20160622, end: 20160831
  17. DACORTIN [Suspect]
     Active Substance: PREDNISONE
     Indication: PYREXIA
     Dosage: UNK
     Route: 065
  18. MEGESTROL [Concomitant]
     Active Substance: MEGESTROL
     Indication: PRODUCT USED FOR UNKNOWN INDICATION
     Dosage: UNK
     Route: 065
  19. POTASSIUM HYDROGEN CARBONATE [Concomitant]
     Indication: PRODUCT USED FOR UNKNOWN INDICATION
     Dosage: UNK
     Route: 065
  20. ASCORBIC ACID. [Concomitant]
     Active Substance: ASCORBIC ACID
     Indication: PRODUCT USED FOR UNKNOWN INDICATION
     Dosage: UNK
     Route: 065
  21. RUXOLITINIB [Suspect]
     Active Substance: RUXOLITINIB
     Dosage: 20 MILLIGRAM, ONCE A DAY, 10 MG, BID
     Route: 048
     Dates: start: 20160705

REACTIONS (1)
  - Respiratory tract infection [Recovered/Resolved]

NARRATIVE: CASE EVENT DATE: 20160717
